FAERS Safety Report 10300438 (Version 2)
Quarter: 2014Q3

REPORT INFORMATION
  Report Type: Report from Study
  Country: BR (occurrence: BR)
  Receive Date: 20140713
  Receipt Date: 20140809
  Transmission Date: 20150326
  Serious: Yes (Hospitalization, Other)
  Sender: FDA-Public Use
  Company Number: PHHY2014BR085129

PATIENT
  Age: 88 Year
  Sex: Female
  Weight: 75 kg

DRUGS (8)
  1. FORASEQ [Suspect]
     Active Substance: BUDESONIDE\FORMOTEROL FUMARATE
     Dosage: 3 DF (12/400 UG)), DAILY
     Route: 055
  2. ENALAPRIL MALEATE. [Concomitant]
     Active Substance: ENALAPRIL MALEATE
     Indication: HYPERTENSION
     Dosage: UNK UKN, UNK
  3. FORASEQ [Suspect]
     Active Substance: BUDESONIDE\FORMOTEROL FUMARATE
     Dosage: 2 DF 1 EACH TREATMENT (12/400 UG),DAILY
     Route: 055
     Dates: start: 201407
  4. FORASEQ [Suspect]
     Active Substance: BUDESONIDE\FORMOTEROL FUMARATE
     Dosage: UNK (12/400 UG), UNK
     Route: 055
  5. OMEPRAZOLE. [Concomitant]
     Active Substance: OMEPRAZOLE
     Indication: GASTRIC DISORDER
     Dosage: 1 DF, DAILY
     Route: 048
  6. FORASEQ [Suspect]
     Active Substance: BUDESONIDE\FORMOTEROL FUMARATE
     Dosage: UNK (12/200 UG), UNK
     Route: 055
  7. FORASEQ [Suspect]
     Active Substance: BUDESONIDE\FORMOTEROL FUMARATE
     Indication: DYSPNOEA
     Dosage: UNK (12/200 UG), BID
     Route: 055
  8. DONAREN [Concomitant]
     Active Substance: TRAZODONE HYDROCHLORIDE
     Indication: GASTRIC DISORDER
     Dosage: 1 DF, TABLE SPOON
     Route: 048

REACTIONS (9)
  - Abasia [Recovering/Resolving]
  - Pancreatic disorder [Recovering/Resolving]
  - Yellow skin [Recovering/Resolving]
  - Joint injury [Recovered/Resolved]
  - Fall [Recovered/Resolved]
  - Head injury [Recovered/Resolved]
  - Pancreatic carcinoma [Recovered/Resolved]
  - Fear [Recovering/Resolving]
  - Biliary tract disorder [Recovering/Resolving]

NARRATIVE: CASE EVENT DATE: 201312
